FAERS Safety Report 23513778 (Version 1)
Quarter: 2024Q1

REPORT INFORMATION
  Report Type: Spontaneous
  Country: ES (occurrence: ES)
  Receive Date: 20240212
  Receipt Date: 20240212
  Transmission Date: 20240410
  Serious: Yes (Hospitalization)
  Sender: FDA-Public Use
  Company Number: None

PATIENT
  Age: 23 Year
  Sex: Female

DRUGS (2)
  1. IBUPROFEN [Suspect]
     Active Substance: IBUPROFEN
     Indication: Postoperative analgesia
     Dosage: 600 MILLIGRAM, PRN
     Route: 048
     Dates: start: 20230825, end: 20230826
  2. METAMIZOLE [Suspect]
     Active Substance: METAMIZOLE
     Indication: Postoperative analgesia
     Dosage: 575 MILLIGRAM, PRN
     Route: 048
     Dates: start: 20230825, end: 20230827

REACTIONS (4)
  - Hypocoagulable state [Recovering/Resolving]
  - Urticaria [Recovered/Resolved]
  - Neutropenia [Recovered/Resolved]
  - Thrombocytopenia [Recovering/Resolving]

NARRATIVE: CASE EVENT DATE: 20230826
